FAERS Safety Report 7777381 (Version 2)
Quarter: 2013Q3

REPORT INFORMATION
  Report Type: Spontaneous
  Country: JP (occurrence: JP)
  Receive Date: 20110128
  Receipt Date: 20130930
  Transmission Date: 20140515
  Serious: Yes (Other)
  Sender: FDA-Public Use
  Company Number: JP-RANBAXY-2011US-41372

PATIENT
  Age: 54 Year
  Sex: Male

DRUGS (2)
  1. VERAPAMIL [Suspect]
     Indication: PRODUCT USED FOR UNKNOWN INDICATION
     Dosage: 360 MG/DAY
     Route: 065
  2. METOPROLOL [Interacting]
     Indication: PRODUCT USED FOR UNKNOWN INDICATION
     Dosage: 200 MG/DAY
     Route: 065

REACTIONS (2)
  - Cardiogenic shock [Recovered/Resolved]
  - Drug interaction [Unknown]
